FAERS Safety Report 9697228 (Version 1)
Quarter: 2013Q4

REPORT INFORMATION
  Report Type: Spontaneous
  Country: US (occurrence: US)
  Receive Date: 20131120
  Receipt Date: 20131120
  Transmission Date: 20140711
  Serious: No
  Sender: FDA-Public Use
  Company Number: US-009507513-1311USA005330

PATIENT
  Sex: 0

DRUGS (1)
  1. INVANZ [Suspect]
     Indication: DIABETIC FOOT INFECTION
     Dosage: 1 G, UNK
     Route: 030

REACTIONS (1)
  - Confusional state [Recovering/Resolving]
